FAERS Safety Report 7372129-X (Version None)
Quarter: 2011Q1

REPORT INFORMATION
  Report Type: 
  Country: None (occurrence: None)
  Receive Date: 20110324
  Receipt Date: 20110315
  Transmission Date: 20110831
  Serious: Yes (Other)
  Sender: FDA-Public Use
  Company Number: US-ROCHE-761746

PATIENT
  Sex: Female
  Weight: 72.6 kg

DRUGS (6)
  1. CALCIUM [Concomitant]
  2. CLARITIN [Concomitant]
     Dosage: FREQUENCY: AS NEEDED.
     Route: 048
  3. CALTRATE [Concomitant]
     Indication: OSTEOPENIA
     Route: 048
  4. ARIMIDEX [Concomitant]
     Indication: BREAST CANCER
     Route: 048
     Dates: start: 20060106
  5. MULTI-VITAMIN [Concomitant]
     Indication: THERAPEUTIC PROCEDURE
     Route: 048
  6. BONIVA [Suspect]
     Indication: OSTEOPENIA
     Route: 048
     Dates: start: 20061212, end: 20110125

REACTIONS (4)
  - HIATUS HERNIA [None]
  - BLOOD CALCIUM INCREASED [None]
  - BLOOD SODIUM INCREASED [None]
  - GASTROOESOPHAGEAL REFLUX DISEASE [None]
